FAERS Safety Report 12171418 (Version 1)
Quarter: 2016Q1

REPORT INFORMATION
  Report Type: Spontaneous
  Country: ZA (occurrence: ZA)
  Receive Date: 20160311
  Receipt Date: 20160311
  Transmission Date: 20160526
  Serious: Yes (Hospitalization)
  Sender: FDA-Public Use
  Company Number: ZA-SUN PHARMACEUTICAL INDUSTRIES LTD-2016R5-112966

PATIENT
  Age: 4 Year
  Sex: Female

DRUGS (24)
  1. ETHIONAMIDE [Suspect]
     Active Substance: ETHIONAMIDE
     Indication: MENINGITIS TUBERCULOUS
     Dosage: UNK
     Route: 065
     Dates: start: 201208, end: 201211
  2. PREDNISOLONE. [Concomitant]
     Active Substance: PREDNISOLONE
     Indication: PRODUCT USED FOR UNKNOWN INDICATION
     Route: 065
  3. ETHIONAMIDE [Suspect]
     Active Substance: ETHIONAMIDE
     Indication: MENINGITIS TUBERCULOUS
     Dosage: UNK
     Route: 065
     Dates: start: 201111, end: 201112
  4. RIFAMPICIN [Suspect]
     Active Substance: RIFAMPIN
     Indication: MENINGITIS TUBERCULOUS
     Dosage: UNK
     Route: 065
     Dates: start: 201202, end: 201206
  5. ETHAMBUTOL [Suspect]
     Active Substance: ETHAMBUTOL HYDROCHLORIDE
     Indication: MENINGITIS TUBERCULOUS
     Dosage: UNK
     Route: 065
     Dates: start: 201208, end: 201211
  6. PYRAZINAMIDE. [Suspect]
     Active Substance: PYRAZINAMIDE
     Indication: MENINGITIS TUBERCULOUS
     Dosage: UNK
     Route: 065
     Dates: start: 201111, end: 201112
  7. PYRAZINAMIDE. [Suspect]
     Active Substance: PYRAZINAMIDE
     Indication: MENINGITIS TUBERCULOUS
     Dosage: UNK
     Route: 065
     Dates: start: 201208, end: 201211
  8. PARA-AMINOSALICYLIC ACID [Suspect]
     Active Substance: AMINOSALICYLIC ACID
     Indication: MENINGITIS TUBERCULOUS
     Dosage: UNK UNK, DAILY
     Route: 065
     Dates: start: 201209, end: 201211
  9. ISONIAZID. [Suspect]
     Active Substance: ISONIAZID
     Indication: MENINGITIS TUBERCULOUS
     Dosage: UNK
     Route: 065
     Dates: start: 201111, end: 201112
  10. OFLOXACIN. [Suspect]
     Active Substance: OFLOXACIN
     Indication: MENINGITIS TUBERCULOUS
     Dosage: UNK
     Route: 065
     Dates: start: 201208, end: 201210
  11. TERIZIDONE [Suspect]
     Active Substance: TERIZIDONE
     Indication: MENINGITIS TUBERCULOUS
     Dosage: UNK
     Route: 065
     Dates: start: 201201, end: 201403
  12. LEVOFLOXACIN. [Suspect]
     Active Substance: LEVOFLOXACIN
     Indication: MENINGITIS TUBERCULOUS
     Dosage: UNK
     Route: 065
     Dates: start: 201211, end: 201403
  13. PARA-AMINOSALICYLIC ACID [Suspect]
     Active Substance: AMINOSALICYLIC ACID
     Indication: MENINGITIS TUBERCULOUS
     Dosage: UNK
     Route: 065
     Dates: start: 201301, end: 201403
  14. CLOFAZIMINE [Suspect]
     Active Substance: CLOFAZIMINE
     Indication: MENINGITIS TUBERCULOUS
     Dosage: UNK
     Route: 065
     Dates: start: 201210, end: 201403
  15. ETHAMBUTOL [Suspect]
     Active Substance: ETHAMBUTOL HYDROCHLORIDE
     Indication: MENINGITIS TUBERCULOUS
     Dosage: UNK
     Route: 065
     Dates: start: 201201, end: 201201
  16. ISONIAZID. [Suspect]
     Active Substance: ISONIAZID
     Indication: MENINGITIS TUBERCULOUS
     Dosage: UNK
     Route: 065
     Dates: start: 201202, end: 201206
  17. OFLOXACIN. [Suspect]
     Active Substance: OFLOXACIN
     Indication: MENINGITIS TUBERCULOUS
     Dosage: UNK
     Route: 065
     Dates: start: 201201, end: 201201
  18. AMIKACIN [Suspect]
     Active Substance: AMIKACIN
     Indication: MENINGITIS TUBERCULOUS
     Dosage: UNK UNK, DAILY
     Route: 065
     Dates: start: 201208, end: 201209
  19. CAPREOMYCIN [Suspect]
     Active Substance: CAPREOMYCIN
     Indication: MENINGITIS TUBERCULOUS
     Dosage: UNK
     Route: 065
     Dates: start: 201210, end: 201306
  20. ETHIONAMIDE [Suspect]
     Active Substance: ETHIONAMIDE
     Indication: MENINGITIS TUBERCULOUS
     Dosage: UNK
     Route: 065
     Dates: start: 201202, end: 201206
  21. ETHIONAMIDE [Suspect]
     Active Substance: ETHIONAMIDE
     Indication: MENINGITIS TUBERCULOUS
     Dosage: UNK
     Route: 065
     Dates: start: 201301, end: 201403
  22. RIFAMPICIN [Suspect]
     Active Substance: RIFAMPIN
     Indication: MENINGITIS TUBERCULOUS
     Dosage: UNK
     Route: 065
     Dates: start: 201111, end: 201112
  23. AMIKACIN [Suspect]
     Active Substance: AMIKACIN
     Indication: MENINGITIS TUBERCULOUS
     Dosage: UNK
     Route: 065
     Dates: start: 201201, end: 201201
  24. LINEZOLID. [Suspect]
     Active Substance: LINEZOLID
     Indication: MENINGITIS TUBERCULOUS
     Dosage: UNK
     Route: 065
     Dates: start: 201210, end: 201403

REACTIONS (7)
  - Drug-induced liver injury [Recovering/Resolving]
  - Anaemia [Recovered/Resolved]
  - Pallor [Recovered/Resolved]
  - Alanine aminotransferase increased [Recovered/Resolved]
  - Hepatosplenomegaly [Recovering/Resolving]
  - Hypothyroidism [Recovered/Resolved]
  - Gastrointestinal disorder [Recovered/Resolved]

NARRATIVE: CASE EVENT DATE: 2012
